FAERS Safety Report 10133669 (Version 4)
Quarter: 2014Q2

REPORT INFORMATION
  Report Type: Spontaneous
  Country: US (occurrence: US)
  Receive Date: 20140428
  Receipt Date: 20140516
  Transmission Date: 20141212
  Serious: Yes (Other)
  Sender: FDA-Public Use
  Company Number: US-FRI-1000066227

PATIENT
  Sex: Female
  Weight: 111 kg

DRUGS (7)
  1. BYSTOLIC [Suspect]
     Indication: HYPERTENSION
     Dosage: 5 MG
     Dates: start: 20140405
  2. VICTOZA [Suspect]
     Indication: GLUCOSE TOLERANCE IMPAIRED
     Dosage: 0.6 MG
     Dates: start: 20140405
  3. CINNAMON [Concomitant]
     Dosage: 2 GRAMS
     Dates: end: 20140501
  4. CINNAMON [Concomitant]
     Dosage: 3 GRAMS
     Dates: start: 20140502
  5. SYMBICORT [Concomitant]
     Dosage: 2 PUFFS IN AM, 1 PUFF IN PM
     Route: 055
  6. SYMBICORT [Concomitant]
     Dosage: 1 PUFF IN AM
     Route: 055
  7. VENTOLIN HFA [Concomitant]
     Dosage: 2 PUFFS AS NEEDED
     Route: 055

REACTIONS (2)
  - Weight decreased [Not Recovered/Not Resolved]
  - Therapeutic response changed [Not Recovered/Not Resolved]
